FAERS Safety Report 4582497-X (Version None)
Quarter: 2005Q1

REPORT INFORMATION
  Report Type: 
  Country: None (occurrence: None)
  Receive Date: 20050215
  Receipt Date: 20050203
  Transmission Date: 20050727
  Serious: Yes (Hospitalization)
  Sender: FDA-Public Use
  Company Number: US-JNJFOC-20050201870

PATIENT
  Sex: Male

DRUGS (2)
  1. RISPERDAL [Suspect]
     Route: 049
  2. RISPERDAL CONSTA [Suspect]
     Route: 050

REACTIONS (8)
  - ABDOMINAL PAIN UPPER [None]
  - AGGRESSION [None]
  - AGITATION [None]
  - CARDIAC FAILURE CONGESTIVE [None]
  - IRRITABILITY [None]
  - PARANOIA [None]
  - POLYDIPSIA [None]
  - URINARY INCONTINENCE [None]
